FAERS Safety Report 5272881-3 (Version None)
Quarter: 2007Q1

REPORT INFORMATION
  Report Type: 
  Country: None (occurrence: None)
  Receive Date: 20061219
  Receipt Date: 20060919
  Transmission Date: 20070707
  Serious: Yes (Hospitalization)
  Sender: FDA-Public Use
  Company Number: US-JNJFOC-20060103450

PATIENT
  Age: 42 Year
  Sex: Female
  Weight: 88.905 kg

DRUGS (4)
  1. ORTHO EVRA [Suspect]
     Indication: MENOPAUSAL SYMPTOMS
     Dosage: 1 DOSE(S), 3 IN 4 WEEK, TRANSDERMAL
     Route: 062
     Dates: start: 20021201, end: 20030101
  2. YASMIN [Suspect]
     Indication: MENOPAUSAL SYMPTOMS
  3. XANAX [Concomitant]
  4. IBUPROFREN (IBUPROFEN) [Concomitant]

REACTIONS (3)
  - ABDOMINAL DISTENSION [None]
  - BREAST PAIN [None]
  - PULMONARY EMBOLISM [None]
